FAERS Safety Report 24309888 (Version 1)
Quarter: 2024Q3

REPORT INFORMATION
  Report Type: Spontaneous
  Country: GB (occurrence: GB)
  Receive Date: 20240912
  Receipt Date: 20240912
  Transmission Date: 20241016
  Serious: Yes (Other)
  Sender: HETERO
  Company Number: None

PATIENT
  Age: 32 Year
  Sex: Female

DRUGS (1)
  1. ARIPIPRAZOLE [Suspect]
     Active Substance: ARIPIPRAZOLE
     Indication: Product used for unknown indication
     Dosage: 5 MILLIGRAM, QD
     Route: 065

REACTIONS (4)
  - Maternal exposure during breast feeding [Unknown]
  - Economic problem [Unknown]
  - Impulse-control disorder [Not Recovered/Not Resolved]
  - Hyperphagia [Unknown]

NARRATIVE: CASE EVENT DATE: 20240701
